FAERS Safety Report 12918332 (Version 1)
Quarter: 2016Q4

REPORT INFORMATION
  Report Type: Spontaneous
  Country: US (occurrence: US)
  Receive Date: 20161107
  Receipt Date: 20161107
  Transmission Date: 20170207
  Serious: No
  Sender: FDA-Public Use
  Company Number: US-TAIHO ONCOLOGY INC-EU-2016-02849

PATIENT
  Age: 73 Year
  Sex: Female

DRUGS (9)
  1. LONSURF [Suspect]
     Active Substance: TIPIRACIL HYDROCHLORIDE\TRIFLURIDINE
     Indication: COLON CANCER
     Route: 048
     Dates: start: 201609
  2. ADVAIR DISKUS [Concomitant]
     Active Substance: FLUTICASONE PROPIONATE\SALMETEROL XINAFOATE
     Dates: start: 201609
  3. PARACETAMOL/OXYCODONE HYDROCHLORIDE [Concomitant]
     Dates: start: 201609
  4. PREDNISONE. [Concomitant]
     Active Substance: PREDNISONE
     Dates: start: 201609
  5. KLOR-CON M20 [Concomitant]
     Active Substance: POTASSIUM CHLORIDE
     Dates: start: 201609
  6. NEXIUM [Concomitant]
     Active Substance: ESOMEPRAZOLE MAGNESIUM
     Dates: start: 201610
  7. ELIQUIS [Concomitant]
     Active Substance: APIXABAN
     Dates: start: 201609
  8. TESSALON [Concomitant]
     Active Substance: BENZONATATE
     Dates: start: 201609
  9. CALCIUM PNV [Concomitant]
     Dates: start: 201609

REACTIONS (2)
  - Dyspepsia [Unknown]
  - Constipation [Unknown]

NARRATIVE: CASE EVENT DATE: 201609
